FAERS Safety Report 5830915-9 (Version None)
Quarter: 2008Q3

REPORT INFORMATION
  Report Type: 
  Country: None (occurrence: None)
  Receive Date: 20080801
  Receipt Date: 20080131
  Transmission Date: 20090109
  Serious: No
  Sender: FDA-Public Use
  Company Number: US-BRISTOL-MYERS SQUIBB COMPANY-14061006

PATIENT
  Age: 78 Year
  Sex: Male
  Weight: 85 kg

DRUGS (1)
  1. COUMADIN [Suspect]
     Dosage: 7.5 MG/D ALTERNATING WITH 5 MG/D ORALLY PER DAY.
     Route: 048
     Dates: start: 20080125

REACTIONS (1)
  - DIZZINESS [None]
